FAERS Safety Report 24542491 (Version 1)
Quarter: 2024Q4

REPORT INFORMATION
  Report Type: Spontaneous
  Country: DE (occurrence: DE)
  Receive Date: 20241024
  Receipt Date: 20241024
  Transmission Date: 20250114
  Serious: Yes (Other)
  Sender: AMGEN
  Company Number: DE-AMGEN-DEUSP2024205974

PATIENT

DRUGS (2)
  1. BEVACIZUMAB [Suspect]
     Active Substance: BEVACIZUMAB
     Indication: Neurofibromatosis
     Dosage: UNK
     Route: 065
  2. BEVACIZUMAB [Suspect]
     Active Substance: BEVACIZUMAB
     Indication: Off label use

REACTIONS (9)
  - Deafness unilateral [Unknown]
  - Acoustic neuroma [Unknown]
  - Drug effective for unapproved indication [Unknown]
  - Fatigue [Unknown]
  - Skin disorder [Unknown]
  - Hypoacusis [Unknown]
  - Off label use [Unknown]
  - Hypertension [Unknown]
  - Nausea [Unknown]
